FAERS Safety Report 10138620 (Version 2)
Quarter: 2014Q2

REPORT INFORMATION
  Report Type: Spontaneous
  Country: US (occurrence: US)
  Receive Date: 20140429
  Receipt Date: 20140509
  Transmission Date: 20141212
  Serious: No
  Sender: FDA-Public Use
  Company Number: US-009507513-1404USA013370

PATIENT
  Sex: Female

DRUGS (1)
  1. OXYTROL FOR WOMEN [Suspect]
     Indication: PRODUCT USED FOR UNKNOWN INDICATION
     Dosage: 1 DF, ONCE
     Route: 062
     Dates: start: 20140405, end: 20140407

REACTIONS (5)
  - Drug hypersensitivity [Not Recovered/Not Resolved]
  - Rash papular [Not Recovered/Not Resolved]
  - Pruritus [Not Recovered/Not Resolved]
  - Application site erythema [Not Recovered/Not Resolved]
  - Product adhesion issue [Unknown]
